FAERS Safety Report 9006217 (Version 2)
Quarter: 2013Q1

REPORT INFORMATION
  Report Type: Spontaneous
  Country: US (occurrence: US)
  Receive Date: 20130110
  Receipt Date: 20130126
  Transmission Date: 20140127
  Serious: Yes (Other)
  Sender: FDA-Public Use
  Company Number: US-009507513-0810USA01265

PATIENT
  Age: 16 Year
  Sex: Female

DRUGS (2)
  1. SINGULAIR [Suspect]
     Indication: ASTHMA
     Dosage: 1 DF, QD
     Route: 048
  2. ZYRTEC [Concomitant]

REACTIONS (4)
  - Vasculitis [Unknown]
  - Haemorrhage [Unknown]
  - Contusion [Unknown]
  - Fatigue [Unknown]
